FAERS Safety Report 19189706 (Version 1)
Quarter: 2021Q2

REPORT INFORMATION
  Report Type: Spontaneous
  Country: JP (occurrence: JP)
  Receive Date: 20210428
  Receipt Date: 20210428
  Transmission Date: 20210717
  Serious: Yes (Other)
  Sender: FDA-Public Use
  Company Number: JP-PFIZER INC-2021440317

PATIENT
  Age: 90 Year
  Sex: Male

DRUGS (1)
  1. INLYTA [Suspect]
     Active Substance: AXITINIB
     Dosage: 4, DAILY
     Route: 048

REACTIONS (2)
  - Haemorrhage [Recovering/Resolving]
  - Blood loss anaemia [Recovering/Resolving]
